FAERS Safety Report 21044592 (Version 1)
Quarter: 2022Q3

REPORT INFORMATION
  Report Type: Spontaneous
  Country: None (occurrence: CA)
  Receive Date: 20220705
  Receipt Date: 20220705
  Transmission Date: 20221027
  Serious: Yes (Other)
  Sender: FDA-Public Use
  Company Number: CA-B.Braun Medical Inc.-2130553

PATIENT
  Age: 81 Year
  Sex: Male

DRUGS (1)
  1. HEPARIN SODIUM IN DEXTROSE [Suspect]
     Active Substance: HEPARIN SODIUM

REACTIONS (2)
  - Drug hypersensitivity [Not Recovered/Not Resolved]
  - Loss of consciousness [Not Recovered/Not Resolved]
